FAERS Safety Report 10095407 (Version 2)
Quarter: 2014Q2

REPORT INFORMATION
  Report Type: Spontaneous
  Country: AR (occurrence: AR)
  Receive Date: 20140422
  Receipt Date: 20140422
  Transmission Date: 20141212
  Serious: Yes (Other)
  Sender: FDA-Public Use
  Company Number: AR-ACTELION-A-CH2014-97369

PATIENT
  Age: 6 Year
  Sex: 0

DRUGS (1)
  1. ZAVESCA [Suspect]
     Indication: NIEMANN-PICK DISEASE
     Dosage: 300 MG, OD
     Route: 048
     Dates: start: 201104

REACTIONS (1)
  - Complex partial seizures [Not Recovered/Not Resolved]
